FAERS Safety Report 23824927 (Version 3)
Quarter: 2025Q2

REPORT INFORMATION
  Report Type: Other
  Country: CN (occurrence: CN)
  Receive Date: 20240507
  Receipt Date: 20250519
  Transmission Date: 20250717
  Serious: Yes (Other)
  Sender: TETRAPHASE PHARMACEUTICALS, INC.
  Company Number: CN-TETRAPHASE PHARMACEUTICALS, INC-2024-INNO-CN000020

PATIENT

DRUGS (3)
  1. XERAVA [Suspect]
     Active Substance: ERAVACYCLINE DIHYDROCHLORIDE
     Indication: Pneumonia
     Dosage: 50 MG, BID, POWDER INJECTION
     Route: 041
     Dates: start: 20240331, end: 20240411
  2. VORICONAZOLE [Suspect]
     Active Substance: VORICONAZOLE
     Indication: Pneumonia
     Dosage: 200 MG, TID, NASAL FEEDING
     Route: 045
     Dates: start: 20240331, end: 20240403
  3. SODIUM CHLORIDE [Concomitant]
     Active Substance: SODIUM CHLORIDE
     Indication: Product used for unknown indication
     Dates: start: 20230331, end: 20240411

REACTIONS (3)
  - Alanine aminotransferase increased [Recovering/Resolving]
  - Aspartate aminotransferase increased [Recovering/Resolving]
  - Off label use [Unknown]

NARRATIVE: CASE EVENT DATE: 20240331
